FAERS Safety Report 18847606 (Version 1)
Quarter: 2021Q1

REPORT INFORMATION
  Report Type: Report from Study
  Country: BR (occurrence: BR)
  Receive Date: 20210204
  Receipt Date: 20210204
  Transmission Date: 20210419
  Serious: Yes (Other)
  Sender: FDA-Public Use
  Company Number: BR-UCBSA-2021004236

PATIENT
  Age: 56 Year
  Sex: Female
  Weight: 75 kg

DRUGS (5)
  1. BENICAR [Concomitant]
     Active Substance: OLMESARTAN MEDOXOMIL
     Indication: HYPERTENSION
     Dosage: 20 MILLIGRAM, ONCE DAILY (QD)
     Route: 048
  2. FOLIC ACID. [Concomitant]
     Active Substance: FOLIC ACID
     Indication: IMMUNODEFICIENCY
     Dosage: UNK
     Route: 048
     Dates: start: 20210118
  3. CERTOLIZUMAB PEGOL RA [Suspect]
     Active Substance: CERTOLIZUMAB PEGOL
     Indication: RHEUMATOID ARTHRITIS
     Dosage: 400 MILLIGRAM, EV 4 WEEKS
     Route: 058
     Dates: end: 202101
  4. VITAMIN C COMPLEX [ASCORBIC ACID;BIOFLAVONOIDS;HESPERIDIN COMPLEX;ROSA [Concomitant]
     Indication: IMMUNODEFICIENCY
     Dosage: UNK
     Route: 048
     Dates: start: 20210118
  5. FERROUS SULPHATE [FERROUS SULFATE] [Concomitant]
     Active Substance: FERROUS SULFATE
     Indication: IMMUNODEFICIENCY
     Dosage: UNK
     Route: 048
     Dates: start: 20210118

REACTIONS (9)
  - Urinary tract infection [Not Recovered/Not Resolved]
  - Nephrolithiasis [Recovered/Resolved]
  - Herpes virus infection [Recovered/Resolved]
  - Anaemia [Recovering/Resolving]
  - Alopecia [Not Recovered/Not Resolved]
  - Asthenia [Not Recovered/Not Resolved]
  - Thyroid mass [Not Recovered/Not Resolved]
  - Aphthous ulcer [Recovered/Resolved]
  - Onychoclasis [Not Recovered/Not Resolved]

NARRATIVE: CASE EVENT DATE: 202010
